FAERS Safety Report 15001484 (Version 2)
Quarter: 2018Q3

REPORT INFORMATION
  Report Type: Other
  Country: DE (occurrence: DE)
  Receive Date: 20180612
  Receipt Date: 20180717
  Transmission Date: 20181010
  Serious: Yes (Other)
  Sender: FDA-Public Use
  Company Number: DE-ASTELLAS-2018US026463

PATIENT
  Age: 30 Year
  Sex: Female

DRUGS (2)
  1. TACROLIMUS. [Suspect]
     Active Substance: TACROLIMUS
     Indication: RENAL TRANSPLANT
     Dosage: UNK UNK, UNKNOWN FREQ.
     Route: 065
  2. FERRIC CARBOXYMALTOSE [Interacting]
     Active Substance: FERRIC CARBOXYMALTOSE
     Indication: MENORRHAGIA
     Dosage: UNK, UNKNOWN FREQ.
     Route: 041

REACTIONS (4)
  - Tubulointerstitial nephritis [Unknown]
  - Drug effect decreased [Unknown]
  - Transplant rejection [Unknown]
  - Drug interaction [Unknown]
